FAERS Safety Report 7526084-X (Version None)
Quarter: 2011Q2

REPORT INFORMATION
  Report Type: 
  Country: None (occurrence: None)
  Receive Date: 20110603
  Receipt Date: 20110603
  Transmission Date: 20111010
  Serious: Yes (Hospitalization)
  Sender: FDA-Public Use
  Company Number: None

PATIENT
  Sex: Male
  Weight: 122.5 kg

DRUGS (4)
  1. OXALIPLATIN (ELOXATIN) [Suspect]
     Dosage: 197 MG
     Dates: end: 20110525
  2. FLUOROURACIL [Suspect]
     Dosage: 5201 MG
     Dates: end: 20110525
  3. LEUCOVORIN CALCIUM [Suspect]
     Dosage: 928 MG
     Dates: end: 20110525
  4. BEVACIZUMAB (RHUMAB VEGF) [Suspect]
     Dosage: 612 MG
     Dates: end: 20110525

REACTIONS (8)
  - CHEST PAIN [None]
  - NAUSEA [None]
  - DYSPNOEA [None]
  - ACUTE CORONARY SYNDROME [None]
  - CHEST DISCOMFORT [None]
  - HYPOAESTHESIA [None]
  - MYOCARDIAL INFARCTION [None]
  - CHEMOTHERAPY [None]
